FAERS Safety Report 7233731-9 (Version None)
Quarter: 2011Q1

REPORT INFORMATION
  Report Type: 
  Country: None (occurrence: None)
  Receive Date: 20110119
  Receipt Date: 20100119
  Transmission Date: 20110831
  Serious: Yes (Other)
  Sender: FDA-Public Use
  Company Number: US-TEVA-221601USA

PATIENT
  Age: 61 Year
  Sex: Female

DRUGS (1)
  1. COPAXONE [Suspect]
     Indication: MULTIPLE SCLEROSIS
     Route: 058

REACTIONS (11)
  - ANAPHYLACTIC REACTION [None]
  - HEAD DISCOMFORT [None]
  - HEART RATE INCREASED [None]
  - DYSGEUSIA [None]
  - BLOOD PRESSURE DECREASED [None]
  - FATIGUE [None]
  - FALL [None]
  - RASH [None]
  - VOMITING [None]
  - ASTHENIA [None]
  - UNRESPONSIVE TO STIMULI [None]
